FAERS Safety Report 8404140-1 (Version None)
Quarter: 2012Q2

REPORT INFORMATION
  Report Type: 
  Country: None (occurrence: None)
  Receive Date: 20120601
  Receipt Date: 20111008
  Transmission Date: 20120825
  Serious: No
  Sender: FDA-Public Use
  Company Number: US-NOVEN-11US003416

PATIENT
  Sex: Male
  Weight: 28.118 kg

DRUGS (4)
  1. CLONIDINE [Concomitant]
     Indication: INSOMNIA
     Dosage: 1 MG, PRN
     Route: 048
  2. CLONIDINE [Concomitant]
     Dosage: 1 MG, BEDTIME
     Route: 048
  3. ADDERALL 5 [Concomitant]
     Indication: ATTENTION DEFICIT/HYPERACTIVITY DISORDER
     Dosage: 30 MG, 1.5 TABLET DAILY
     Route: 048
     Dates: start: 20111005
  4. DAYTRANA [Suspect]
     Indication: ATTENTION DEFICIT/HYPERACTIVITY DISORDER
     Dosage: 10 MG, QD FOR 9 HOURS
     Route: 062
     Dates: start: 20111005

REACTIONS (3)
  - PRODUCT QUALITY ISSUE [None]
  - NO ADVERSE EVENT [None]
  - DRUG ADMINISTRATION ERROR [None]
